FAERS Safety Report 6674949-3 (Version None)
Quarter: 2010Q1

REPORT INFORMATION
  Report Type: 
  Country: None (occurrence: None)
  Receive Date: 20100331
  Receipt Date: 20091110
  Transmission Date: 20100710
  Serious: Yes (Other)
  Sender: FDA-Public Use
  Company Number: 2009287843

PATIENT
  Age: 69 Year
  Sex: Male

DRUGS (10)
  1. SUTENT [Suspect]
     Indication: RENAL CELL CARCINOMA
     Dosage: 50 MG, 1X/DAY, ORAL
     Route: 048
     Dates: start: 20090823, end: 20091015
  2. OMEPRAZOLE [Concomitant]
  3. AMLODIPINE [Concomitant]
  4. GLIPIZIDE [Concomitant]
  5. METOPROLOL (METOPROLOL) [Concomitant]
  6. SIMVASTATIN [Concomitant]
  7. CLONIDINE [Concomitant]
  8. VITAMIN D [Concomitant]
  9. GLUCOSAMINE W/CHONDROITIN SULFATES (ASCORBIC ACID, CHONDROITIN SULFATE [Concomitant]
  10. OXYGEN (OXYGEN) [Concomitant]

REACTIONS (1)
  - RENAL FAILURE [None]
